FAERS Safety Report 18412050 (Version 1)
Quarter: 2020Q4

REPORT INFORMATION
  Report Type: Spontaneous
  Country: CA (occurrence: CA)
  Receive Date: 20201021
  Receipt Date: 20201021
  Transmission Date: 20210114
  Serious: Yes (Other)
  Sender: FDA-Public Use
  Company Number: CA-JNJFOC-20201026829

PATIENT
  Age: 78 Year
  Sex: Female

DRUGS (8)
  1. LATANOPROST. [Suspect]
     Active Substance: LATANOPROST
     Route: 065
  2. LATANOPROST. [Suspect]
     Active Substance: LATANOPROST
     Route: 065
  3. HYDROCHLOROTHIAZIDE. [Suspect]
     Active Substance: HYDROCHLOROTHIAZIDE
     Route: 065
  4. LOSARTAN. [Suspect]
     Active Substance: LOSARTAN
     Route: 065
  5. FENTANYL. [Concomitant]
     Active Substance: FENTANYL
     Indication: SEDATION
     Route: 065
  6. MIDAZOLAM HYDROCHLORIDE. [Concomitant]
     Active Substance: MIDAZOLAM HYDROCHLORIDE
     Indication: SEDATION
     Route: 065
  7. REMICADE [Suspect]
     Active Substance: INFLIXIMAB
     Indication: PRODUCT USED FOR UNKNOWN INDICATION
     Route: 042
  8. BISOPROLOL [Suspect]
     Active Substance: BISOPROLOL
     Route: 065

REACTIONS (6)
  - Diverticulitis [Unknown]
  - Obesity [Unknown]
  - Large intestine polyp [Unknown]
  - Haemorrhoids [Unknown]
  - Intestinal anastomosis [Unknown]
  - Diarrhoea [Unknown]
